FAERS Safety Report 9631684 (Version 2)
Quarter: 2013Q4

REPORT INFORMATION
  Report Type: Spontaneous
  Country: US (occurrence: US)
  Receive Date: 20131018
  Receipt Date: 20131018
  Transmission Date: 20140711
  Serious: No
  Sender: FDA-Public Use
  Company Number: US-PFIZER INC-2008160357

PATIENT
  Age: 53 Year
  Sex: Female
  Weight: 70.7 kg

DRUGS (12)
  1. CHANTIX [Suspect]
     Indication: SMOKING CESSATION THERAPY
     Dosage: 0.5 MG, 1X/DAY
     Route: 048
  2. CHANTIX [Suspect]
     Dosage: 0.5 MG, 2X/DAY
     Route: 048
  3. CHANTIX [Suspect]
     Dosage: 1 MG, 2X/DAY
     Route: 048
  4. CHANTIX [Suspect]
     Dosage: 1 MG, 2X/DAY
     Route: 048
     Dates: start: 200808, end: 200812
  5. CHANTIX [Suspect]
     Dosage: 1MG (TWO 0.5MG TABLETS) DAILY
     Route: 048
     Dates: start: 20130717, end: 201307
  6. CHANTIX [Suspect]
     Dosage: TWO 0.5MG TABLETS TWO TIMES A DAY
     Route: 048
     Dates: start: 2013, end: 2013
  7. CHANTIX [Suspect]
     Dosage: TWO 1MG TABLETS TWO TIMES A DAY
     Route: 048
     Dates: start: 2013
  8. METFORMIN [Concomitant]
     Dosage: UNK
  9. LOSARTAN [Concomitant]
     Indication: HYPERTENSION
     Dosage: 25 MG, DAILY
  10. GEMFIBROZIL [Concomitant]
     Indication: HYPERLIPIDAEMIA
     Dosage: 600 MG, 2X/DAY
  11. GLYBURIDE/METFORMIN [Concomitant]
     Indication: TYPE 2 DIABETES MELLITUS
     Dosage: GLYBURIDE 2.5 MG/METFORMIN 500 MG, 2X/DAY
  12. OMEPRAZOLE [Concomitant]
     Indication: GASTROOESOPHAGEAL REFLUX DISEASE
     Dosage: 40 MG, DAILY

REACTIONS (2)
  - Abnormal dreams [Recovered/Resolved]
  - Vomiting [Recovered/Resolved with Sequelae]
